FAERS Safety Report 8487631-7 (Version None)
Quarter: 2012Q3

REPORT INFORMATION
  Report Type: 
  Country: None (occurrence: None)
  Receive Date: 20120705
  Receipt Date: 20120626
  Transmission Date: 20120928
  Serious: Yes (Hospitalization, Other)
  Sender: FDA-Public Use
  Company Number: US-BAYER-2012-042739

PATIENT
  Age: 26 Year
  Sex: Female
  Weight: 119.96 kg

DRUGS (4)
  1. YASMIN [Suspect]
     Dosage: UNK
     Dates: start: 20040130, end: 20061209
  2. LIPITOR [Concomitant]
     Indication: BLOOD CHOLESTEROL INCREASED
     Dosage: UNK
     Dates: start: 20041105, end: 20060126
  3. YASMIN [Suspect]
     Dosage: UNK
     Dates: start: 20050101
  4. NSAID'S [Concomitant]

REACTIONS (11)
  - PULMONARY EMBOLISM [None]
  - CHOLELITHIASIS [None]
  - THROMBOPHLEBITIS SUPERFICIAL [None]
  - DEEP VEIN THROMBOSIS [None]
  - PAIN [None]
  - OEDEMA PERIPHERAL [None]
  - CHOLECYSTITIS CHRONIC [None]
  - INJURY [None]
  - PYREXIA [None]
  - ABDOMINAL PAIN [None]
  - PAIN IN EXTREMITY [None]
